FAERS Safety Report 5252360-X (Version None)
Quarter: 2007Q1

REPORT INFORMATION
  Report Type: 
  Country: None (occurrence: None)
  Receive Date: 20070301
  Receipt Date: 20060731
  Transmission Date: 20070707
  Serious: No
  Sender: FDA-Public Use
  Company Number: US-BRISTOL-MYERS SQUIBB COMPANY-13460993

PATIENT
  Age: 50 Year
  Sex: Female

DRUGS (3)
  1. CYCLOPHOSPHAMIDE [Suspect]
     Indication: BREAST CANCER
     Dates: end: 19991101
  2. TAXOL [Suspect]
     Indication: BREAST CANCER
     Dates: end: 19991101
  3. ADRIAMYCIN PFS [Suspect]
     Indication: BREAST CANCER
     Dates: end: 19991101

REACTIONS (1)
  - ALOPECIA [None]
